FAERS Safety Report 4432183-1 (Version None)
Quarter: 2004Q3

REPORT INFORMATION
  Report Type: 
  Country: None (occurrence: None)
  Receive Date: 20040820
  Receipt Date: 20040809
  Transmission Date: 20050211
  Serious: Yes (Hospitalization)
  Sender: FDA-Public Use
  Company Number: 2004227935DE

PATIENT
  Age: 64 Year
  Sex: Female
  Weight: 67 kg

DRUGS (3)
  1. FARMORUBICIN(EPIRUBICIN HYDROCHLORIDE) SOLUTION, STERILE [Suspect]
     Indication: BREAST CANCER
     Dosage: 100MG, QD/CYCLE 4, IV
     Route: 042
     Dates: start: 20040720, end: 20040727
  2. CYCLOPHOSPHAMIDE [Suspect]
     Indication: BREAST CANCER
     Dosage: 100 MG, X 14 DAYS, ORAL
     Route: 048
     Dates: start: 20040720
  3. FLUOROURACIL [Suspect]
     Indication: BREAST CANCER
     Dosage: 840 MG/QD/CYCLE 4, IV
     Route: 042
     Dates: start: 20040720, end: 20040727

REACTIONS (9)
  - ASTHENIA [None]
  - BRONCHITIS [None]
  - CEREBELLAR SYNDROME [None]
  - ELECTROLYTE IMBALANCE [None]
  - NAUSEA [None]
  - PARESIS [None]
  - STOMATITIS [None]
  - VERTIGO [None]
  - VOMITING [None]
